FAERS Safety Report 25509684 (Version 1)
Quarter: 2025Q3

REPORT INFORMATION
  Report Type: Spontaneous
  Country: US (occurrence: US)
  Receive Date: 20250703
  Receipt Date: 20250703
  Transmission Date: 20251021
  Serious: No
  Sender: ELI LILLY AND COMPANY
  Company Number: US-ELI_LILLY_AND_COMPANY-US202506026758

PATIENT
  Age: 77 Year
  Sex: Male

DRUGS (1)
  1. ZEPBOUND [Suspect]
     Active Substance: TIRZEPATIDE
     Indication: Product used for unknown indication
     Route: 058

REACTIONS (5)
  - Flushing [Unknown]
  - Nervousness [Unknown]
  - Hyperhidrosis [Unknown]
  - Taste disorder [Unknown]
  - Vertigo [Unknown]
